FAERS Safety Report 8909474 (Version 4)
Quarter: 2014Q1

REPORT INFORMATION
  Report Type: Report from Study
  Country: BG (occurrence: BG)
  Receive Date: 20121115
  Receipt Date: 20140306
  Transmission Date: 20141002
  Serious: Yes (Other)
  Sender: FDA-Public Use
  Company Number: BG-AMGEN-BGRNI2012072765

PATIENT
  Age: 68 Year
  Sex: Male

DRUGS (3)
  1. ROMIPLOSTIM [Suspect]
     Indication: IMMUNE THROMBOCYTOPENIC PURPURA
     Dosage: 1 MUG/KG, QWK
     Route: 058
     Dates: start: 20101011
  2. CO ENALAPRIL                       /00574902/ [Concomitant]
     Indication: HYPERTENSION
     Dosage: 20 MG, BID
     Route: 048
     Dates: start: 2008
  3. BETALOC                            /00376902/ [Concomitant]
     Indication: HYPERTENSION
     Dosage: 50 MG, QD
     Route: 048
     Dates: start: 2008

REACTIONS (2)
  - White blood cell count increased [Unknown]
  - Lymphocytosis [Not Recovered/Not Resolved]
